FAERS Safety Report 4268074-9 (Version None)
Quarter: 2004Q1

REPORT INFORMATION
  Report Type: 
  Country: None (occurrence: None)
  Receive Date: 20040109
  Receipt Date: 20040109
  Transmission Date: 20041129
  Serious: Yes (Life-Threatening, Hospitalization)
  Sender: FDA-Public Use
  Company Number: None

PATIENT
  Age: 13 Year
  Sex: Female
  Weight: 58.9676 kg

DRUGS (6)
  1. CLEOCIN [Suspect]
     Indication: PROPHYLAXIS
     Dosage: 400MG IV PREOP
     Route: 042
     Dates: start: 20030730
  2. CLEOCIN [Suspect]
     Indication: SURGERY
     Dosage: 400MG IV PREOP
     Route: 042
     Dates: start: 20030730
  3. PROPOFOL [Concomitant]
  4. SEVOFLURANE [Concomitant]
  5. ROCURONIUM [Concomitant]
  6. SUCCINYLCHOLINE CHLORIDE [Concomitant]

REACTIONS (3)
  - ANGIONEUROTIC OEDEMA [None]
  - INCREASED BRONCHIAL SECRETION [None]
  - OXYGEN SATURATION ABNORMAL [None]
